FAERS Safety Report 5048059-5 (Version None)
Quarter: 2006Q3

REPORT INFORMATION
  Report Type: 
  Country: None (occurrence: None)
  Receive Date: 20060705
  Receipt Date: 20060614
  Transmission Date: 20061208
  Serious: Yes (Other)
  Sender: FDA-Public Use
  Company Number: US200606005556

PATIENT
  Sex: Female

DRUGS (2)
  1. HUMULIN 70/30 [Suspect]
     Dates: start: 19910101
  2. HUMALOG [Suspect]
     Dosage: 3/D, PER SLIDIING SCALE
     Dates: start: 20030101

REACTIONS (3)
  - BONE MARROW DISORDER [None]
  - CEREBROVASCULAR ACCIDENT [None]
  - VAGINITIS BACTERIAL [None]
